FAERS Safety Report 9782690 (Version 1)
Quarter: 2013Q4

REPORT INFORMATION
  Report Type: Spontaneous
  Country: FR (occurrence: None)
  Receive Date: 20131220
  Receipt Date: 20131220
  Transmission Date: 20140711
  Serious: Yes (Hospitalization)
  Sender: FDA-Public Use
  Company Number: 1976294

PATIENT
  Age: 83 Year
  Sex: Female

DRUGS (6)
  1. (PACLITAXEL EBEWE) [Suspect]
     Indication: BREAST CANCER
     Dosage: 105 MG MILLIGRAM(S), UNKNOWN?INTRAVENOUS DRIP
     Route: 041
  2. (POLARAMINE) [Concomitant]
  3. (METHYLPREDNISOLONE MERCK) [Concomitant]
  4. (ZOPHREN /00955301/) [Concomitant]
  5. (AZANTAC) [Concomitant]
  6. (CARBOPLATIN) [Suspect]
     Indication: BREAST CANCER
     Dosage: 120 MG MILLIGRAM(S), UNKNOWN, INTRAVENOUS (NOT OTHERWISE SPECIFIED)
     Route: 042
     Dates: start: 20101207, end: 20101207

REACTIONS (2)
  - Back pain [None]
  - Hypersensitivity [None]
